FAERS Safety Report 23944760 (Version 1)
Quarter: 2024Q2

REPORT INFORMATION
  Report Type: Other
  Country: IN (occurrence: None)
  Receive Date: 20240606
  Receipt Date: 20240606
  Transmission Date: 20240716
  Serious: Yes (Death)
  Sender: FDA-Public Use
  Company Number: IN-ROCHE-3576624

PATIENT

DRUGS (5)
  1. RITUXIMAB [Suspect]
     Active Substance: RITUXIMAB
     Indication: Idiopathic inflammatory myopathy
     Dosage: RTX 1GRAM TWO DOSES OR 375 MG/M2 FOUR DOSES OR OF 375 MG/M2 TWO DOSES
     Route: 041
  2. RITUXIMAB [Suspect]
     Active Substance: RITUXIMAB
     Route: 041
  3. MYCOPHENOLATE MOFETIL [Suspect]
     Active Substance: MYCOPHENOLATE MOFETIL
     Indication: Idiopathic inflammatory myopathy
     Route: 065
  4. METHOTREXATE [Suspect]
     Active Substance: METHOTREXATE
     Indication: Idiopathic inflammatory myopathy
     Route: 065
  5. TACROLIMUS [Suspect]
     Active Substance: TACROLIMUS
     Indication: Idiopathic inflammatory myopathy
     Route: 065

REACTIONS (5)
  - Respiratory tract infection [Fatal]
  - Urinary tract infection [Unknown]
  - Infusion related reaction [Unknown]
  - Off label use [Unknown]
  - Off label use [Unknown]
